FAERS Safety Report 9211900 (Version 2)
Quarter: 2013Q3

REPORT INFORMATION
  Report Type: Spontaneous
  Country: US (occurrence: US)
  Receive Date: 20130404
  Receipt Date: 20130904
  Transmission Date: 20140515
  Serious: No
  Sender: FDA-Public Use
  Company Number: US-AMGEN-USASP2013021090

PATIENT
  Sex: 0

DRUGS (3)
  1. ENBREL [Suspect]
     Indication: RHEUMATOID ARTHRITIS
     Dosage: 50 MG, WEEKLY
     Route: 065
     Dates: start: 20080212
  2. METHOTREXATE [Concomitant]
     Dosage: 40 MG, WEEKLY
     Route: 048
  3. METHOTREXATE [Concomitant]

REACTIONS (4)
  - Overdose [Recovered/Resolved]
  - Extra dose administered [Recovered/Resolved]
  - Injection site laceration [Recovered/Resolved]
  - Injection site pain [Recovered/Resolved]
